FAERS Safety Report 13488658 (Version 1)
Quarter: 2017Q2

REPORT INFORMATION
  Report Type: Spontaneous
  Country: US (occurrence: US)
  Receive Date: 20170426
  Receipt Date: 20170426
  Transmission Date: 20170830
  Serious: Yes (Hospitalization, Disabling, Other)
  Sender: FDA-Public Use
  Company Number: None

PATIENT
  Age: 71 Year
  Sex: Male
  Weight: 140.62 kg

DRUGS (12)
  1. VITAMIN IRON [Concomitant]
  2. CARVEDILOL. [Concomitant]
     Active Substance: CARVEDILOL
  3. LEVOTHYROXINE. [Concomitant]
     Active Substance: LEVOTHYROXINE
  4. VITAMN B12 [Concomitant]
  5. VITAMIN D [Concomitant]
     Active Substance: CHOLECALCIFEROL
  6. OMEPRAZOLE. [Concomitant]
     Active Substance: OMEPRAZOLE
  7. VELTASSA [Suspect]
     Active Substance: PATIROMER
     Indication: HYPERKALAEMIA
     Dosage: 1 PACK DAILY BY MOUTH MIXED WITH 3OZ WATER
     Route: 048
     Dates: start: 20170215, end: 20170330
  8. LASIX [Concomitant]
     Active Substance: FUROSEMIDE
  9. SIMVASTATIN. [Concomitant]
     Active Substance: SIMVASTATIN
  10. TOUJEO [Concomitant]
     Active Substance: INSULIN GLARGINE
  11. ASPIRIN. [Concomitant]
     Active Substance: ASPIRIN
  12. ACARBOSE. [Concomitant]
     Active Substance: ACARBOSE

REACTIONS (6)
  - Hypoaesthesia [None]
  - Muscle spasms [None]
  - Blood magnesium decreased [None]
  - Tremor [None]
  - Paraesthesia [None]
  - Arthralgia [None]

NARRATIVE: CASE EVENT DATE: 20170329
